FAERS Safety Report 9648927 (Version 1)
Quarter: 2013Q4

REPORT INFORMATION
  Report Type: Spontaneous
  Country: US (occurrence: None)
  Receive Date: 20131025
  Receipt Date: 20131025
  Transmission Date: 20140711
  Serious: Yes (Disabling, Other)
  Sender: FDA-Public Use
  Company Number: None

PATIENT
  Age: 41 Year
  Sex: Female
  Weight: 52.62 kg

DRUGS (1)
  1. CIPRO [Suspect]
     Indication: URINARY TRACT INFECTION
     Route: 048
     Dates: start: 20130901, end: 20130907

REACTIONS (9)
  - Back pain [None]
  - Burning sensation [None]
  - Pain [None]
  - Feeling abnormal [None]
  - Muscular weakness [None]
  - Memory impairment [None]
  - Affective disorder [None]
  - Condition aggravated [None]
  - Arthropathy [None]
